FAERS Safety Report 23586402 (Version 1)
Quarter: 2024Q1

REPORT INFORMATION
  Report Type: Report from Study
  Country: CA (occurrence: CA)
  Receive Date: 20240301
  Receipt Date: 20240301
  Transmission Date: 20240410
  Serious: Yes (Other)
  Sender: FDA-Public Use
  Company Number: CA-TAKEDA-2024TUS018910

PATIENT
  Sex: Female

DRUGS (7)
  1. VEDOLIZUMAB [Suspect]
     Active Substance: VEDOLIZUMAB
     Indication: Crohn^s disease
     Dosage: 300 MILLIGRAM
     Route: 042
     Dates: start: 20230405, end: 20240104
  2. SERTRALINE [Concomitant]
     Active Substance: SERTRALINE HYDROCHLORIDE
     Indication: Anxiety
     Dosage: UNK
  3. SERTRALINE [Concomitant]
     Active Substance: SERTRALINE HYDROCHLORIDE
     Indication: Depression
  4. ZOPICLONE [Concomitant]
     Active Substance: ZOPICLONE
     Indication: Anxiety
     Dosage: UNK
  5. ZOPICLONE [Concomitant]
     Active Substance: ZOPICLONE
     Indication: Depression
  6. IRON [Concomitant]
     Active Substance: IRON
     Indication: Iron deficiency anaemia
     Dosage: UNK
  7. IRON [Concomitant]
     Active Substance: IRON
     Indication: Supplementation therapy

REACTIONS (1)
  - Autoimmune hepatitis [Unknown]
